FAERS Safety Report 20740363 (Version 4)
Quarter: 2023Q4

REPORT INFORMATION
  Report Type: Report from Study
  Country: US (occurrence: US)
  Receive Date: 20220422
  Receipt Date: 20231208
  Transmission Date: 20240110
  Serious: Yes (Hospitalization, Other)
  Sender: FDA-Public Use
  Company Number: US-TAKEDA-2022TUS027005

PATIENT
  Age: 78 Year
  Sex: Female

DRUGS (4)
  1. TEDUGLUTIDE [Suspect]
     Active Substance: TEDUGLUTIDE
     Indication: Short-bowel syndrome
     Dosage: 1.9 MILLIGRAM, QD
     Route: 058
     Dates: start: 20220301, end: 20231204
  2. TEDUGLUTIDE [Suspect]
     Active Substance: TEDUGLUTIDE
     Indication: Short-bowel syndrome
     Dosage: 1.9 MILLIGRAM, QD
     Route: 058
     Dates: start: 20220301, end: 20231204
  3. TEDUGLUTIDE [Suspect]
     Active Substance: TEDUGLUTIDE
     Indication: Short-bowel syndrome
     Dosage: 1.9 MILLIGRAM, QD
     Route: 058
     Dates: start: 20220301, end: 20231204
  4. TEDUGLUTIDE [Suspect]
     Active Substance: TEDUGLUTIDE
     Indication: Short-bowel syndrome
     Dosage: 1.9 MILLIGRAM, QD
     Route: 058
     Dates: start: 20220301, end: 20231204

REACTIONS (5)
  - Cholecystitis infective [Unknown]
  - Diarrhoea [Recovering/Resolving]
  - Insurance issue [Unknown]
  - Vomiting [Recovering/Resolving]
  - Product use issue [Unknown]

NARRATIVE: CASE EVENT DATE: 20220417
